FAERS Safety Report 6860730-9 (Version None)
Quarter: 2010Q3

REPORT INFORMATION
  Report Type: 
  Country: None (occurrence: None)
  Receive Date: 20100720
  Receipt Date: 20100707
  Transmission Date: 20110219
  Serious: Yes (Other)
  Sender: FDA-Public Use
  Company Number: PHHY2010US33749

PATIENT
  Sex: Male
  Weight: 33.4 kg

DRUGS (4)
  1. EXJADE [Suspect]
     Indication: SICKLE CELL ANAEMIA
     Dosage: 1000 MG DAILY
     Route: 048
     Dates: start: 20090417, end: 20100504
  2. EXJADE [Suspect]
     Indication: IRON OVERLOAD
     Dosage: 1250 MG DAILY
     Route: 048
     Dates: start: 20100520
  3. POLY-VI-FLOR [Concomitant]
     Dosage: 1 MG DAILY
     Route: 048
  4. BLOOD TRANSFUSION [Concomitant]
     Dosage: UNK
     Dates: start: 20071218

REACTIONS (3)
  - ALANINE AMINOTRANSFERASE INCREASED [None]
  - BLOOD IRON INCREASED [None]
  - VIRAL INFECTION [None]
